FAERS Safety Report 4323106-4 (Version None)
Quarter: 2004Q1

REPORT INFORMATION
  Report Type: 
  Country: None (occurrence: None)
  Receive Date: 20040322
  Receipt Date: 20040309
  Transmission Date: 20041129
  Serious: Yes (Other)
  Sender: FDA-Public Use
  Company Number: 2003173486US

PATIENT
  Age: 75 Year
  Sex: Female

DRUGS (6)
  1. CELEBREX [Suspect]
     Indication: OSTEOARTHRITIS
     Dosage: 200 MG, QD, ORAL
     Route: 048
  2. ALTACE [Concomitant]
  3. XANAX [Concomitant]
  4. ZANAFLEX [Concomitant]
  5. INSULIN [Concomitant]
  6. GLUCOPHAGE [Concomitant]

REACTIONS (2)
  - HEPATIC CIRRHOSIS [None]
  - HEPATOMEGALY [None]
